FAERS Safety Report 9846973 (Version 1)
Quarter: 2013Q4

REPORT INFORMATION
  Report Type: Spontaneous
  Country: US (occurrence: None)
  Receive Date: 20131219
  Receipt Date: 20131219
  Transmission Date: 20140711
  Serious: Yes (Other)
  Sender: FDA-Public Use
  Company Number: 163-20785-13090463

PATIENT
  Sex: Female

DRUGS (4)
  1. THALOMID [Suspect]
     Indication: PLASMA CELL MYELOMA
     Route: 048
     Dates: start: 201303, end: 201305
  2. COUMADIN(WARFARIN SODIUM)(TABLETS) [Concomitant]
  3. DEXAMETHASONE(DEXAMETHASONE)(TABLETS) [Concomitant]
  4. VELCADE(BORTEZOMIB) [Concomitant]

REACTIONS (2)
  - Hair disorder [None]
  - Neuropathy peripheral [None]
